FAERS Safety Report 16872187 (Version 1)
Quarter: 2019Q4

REPORT INFORMATION
  Report Type: Spontaneous
  Country: US (occurrence: US)
  Receive Date: 20191001
  Receipt Date: 20191001
  Transmission Date: 20200122
  Serious: Yes (Other)
  Sender: FDA-Public Use
  Company Number: US-ROCHE-2415920

PATIENT
  Age: 52 Year

DRUGS (1)
  1. BONVIVA [Suspect]
     Active Substance: IBANDRONATE SODIUM
     Indication: OSTEOPOROSIS
     Route: 048
     Dates: start: 20181009

REACTIONS (8)
  - Pain [Unknown]
  - Scar [Unknown]
  - Dyspepsia [Unknown]
  - Chills [Unknown]
  - Urinary tract infection [Unknown]
  - Heart rate increased [Unknown]
  - Blood urine present [Unknown]
  - Malaise [Unknown]

NARRATIVE: CASE EVENT DATE: 20181009
